FAERS Safety Report 23989255 (Version 1)
Quarter: 2024Q2

REPORT INFORMATION
  Report Type: Report from Study
  Country: US (occurrence: US)
  Receive Date: 20240619
  Receipt Date: 20240619
  Transmission Date: 20240716
  Serious: Yes (Other)
  Sender: FDA-Public Use
  Company Number: US-BAYER-2024A029560

PATIENT
  Age: 85 Year
  Sex: Male

DRUGS (2)
  1. NUBEQA [Suspect]
     Active Substance: DAROLUTAMIDE
     Dosage: UNK
  2. ORGOVYX [Concomitant]
     Active Substance: RELUGOLIX
     Indication: Prostate cancer
     Dosage: 120 MG, QD
     Dates: start: 20230112

REACTIONS (8)
  - Positron emission tomogram abnormal [Unknown]
  - Neuropathy peripheral [Unknown]
  - Dependence on oxygen therapy [None]
  - Mobility decreased [Unknown]
  - Pain in extremity [None]
  - Hypotension [Unknown]
  - Asthenia [Unknown]
  - Blood glucose increased [Unknown]
